FAERS Safety Report 11521487 (Version 1)
Quarter: 2015Q3

REPORT INFORMATION
  Report Type: Spontaneous
  Country: US (occurrence: None)
  Receive Date: 20150917
  Receipt Date: 20150917
  Transmission Date: 20151125
  Serious: Yes (Life-Threatening, Hospitalization)
  Sender: FDA-Public Use
  Company Number: None

PATIENT
  Age: 32 Year
  Sex: Male
  Weight: 100 kg

DRUGS (3)
  1. PRAZOSIN [Suspect]
     Active Substance: PRAZOSIN
     Indication: POST-TRAUMATIC STRESS DISORDER
     Dosage: 1 MG  AT BEDTIME  PO
     Route: 048
     Dates: start: 20150824, end: 20150825
  2. PRAZOSIN [Suspect]
     Active Substance: PRAZOSIN
     Indication: POOR QUALITY SLEEP
     Dosage: 1 MG  AT BEDTIME  PO
     Route: 048
     Dates: start: 20150824, end: 20150825
  3. PRAZOSIN [Suspect]
     Active Substance: PRAZOSIN
     Indication: NIGHTMARE
     Dosage: 1 MG  AT BEDTIME  PO
     Route: 048
     Dates: start: 20150824, end: 20150825

REACTIONS (7)
  - Bradycardia [None]
  - Cold sweat [None]
  - Hypotension [None]
  - Dizziness [None]
  - Syncope [None]
  - Pallor [None]
  - Dyspnoea [None]

NARRATIVE: CASE EVENT DATE: 20150825
